FAERS Safety Report 8947026 (Version 2)
Quarter: 2013Q1

REPORT INFORMATION
  Report Type: Spontaneous
  Country: US (occurrence: US)
  Receive Date: 20121205
  Receipt Date: 20130102
  Transmission Date: 20140127
  Serious: No
  Sender: FDA-Public Use
  Company Number: US-PFIZER INC-2012300614

PATIENT
  Age: 69 Year
  Sex: Male
  Weight: 86.17 kg

DRUGS (2)
  1. VIAGRA [Suspect]
     Indication: ERECTILE DYSFUNCTION
     Dosage: 100 MG, WEEKLY
  2. VIAGRA [Suspect]
     Dosage: 100 MG, UNK
     Dates: end: 2012

REACTIONS (4)
  - Product quality issue [Unknown]
  - Nausea [Unknown]
  - Malaise [Recovering/Resolving]
  - Headache [Unknown]
